FAERS Safety Report 19118035 (Version 1)
Quarter: 2021Q2

REPORT INFORMATION
  Report Type: Report from Study
  Country: IL (occurrence: IL)
  Receive Date: 20210409
  Receipt Date: 20210409
  Transmission Date: 20210717
  Serious: No
  Sender: FDA-Public Use
  Company Number: IL-KARYOPHARM-2021KPT000039

PATIENT
  Age: 86 Year
  Sex: Male

DRUGS (2)
  1. SELINEXOR [Suspect]
     Active Substance: SELINEXOR
     Indication: DIFFUSE LARGE B-CELL LYMPHOMA
     Dosage: UNK
     Route: 048
     Dates: start: 20201012
  2. SELINEXOR [Suspect]
     Active Substance: SELINEXOR
     Dosage: UNK
     Route: 048
     Dates: end: 20201231

REACTIONS (2)
  - Diffuse large B-cell lymphoma refractory [Unknown]
  - Thrombocytopenia [Unknown]
